FAERS Safety Report 10164543 (Version 1)
Quarter: 2014Q2

REPORT INFORMATION
  Report Type: Spontaneous
  Country: US (occurrence: US)
  Receive Date: 20140510
  Receipt Date: 20140510
  Transmission Date: 20141212
  Serious: No
  Sender: FDA-Public Use
  Company Number: US-BRISTOL-MYERS SQUIBB COMPANY-20100772

PATIENT
  Age: 66 Year
  Sex: Male

DRUGS (3)
  1. BYDUREON [Suspect]
     Indication: DIABETES MELLITUS
     Dates: start: 20140115
  2. METFORMIN [Concomitant]
     Indication: DIABETES MELLITUS
  3. GLIPIZIDE [Concomitant]
     Indication: DIABETES MELLITUS

REACTIONS (2)
  - Injection site urticaria [Unknown]
  - Injection site pain [Unknown]
